FAERS Safety Report 8182579-X (Version None)
Quarter: 2012Q1

REPORT INFORMATION
  Report Type: 
  Country: None (occurrence: None)
  Receive Date: 20120305
  Receipt Date: 20120223
  Transmission Date: 20120608
  Serious: No
  Sender: FDA-Public Use
  Company Number: US-BIOGENIDEC-2012BI007117

PATIENT
  Age: 59 Year
  Sex: Female

DRUGS (1)
  1. AVONEX [Suspect]
     Indication: MULTIPLE SCLEROSIS
     Route: 030
     Dates: start: 20030125

REACTIONS (5)
  - DIZZINESS [None]
  - MULTIPLE SCLEROSIS RELAPSE [None]
  - ASTHMA [None]
  - LOWER RESPIRATORY TRACT INFECTION [None]
  - BRONCHITIS [None]
